FAERS Safety Report 6044000-7 (Version None)
Quarter: 2009Q1

REPORT INFORMATION
  Report Type: 
  Country: None (occurrence: None)
  Receive Date: 20090120
  Receipt Date: 20090114
  Transmission Date: 20090719
  Serious: Yes (Hospitalization)
  Sender: FDA-Public Use
  Company Number: FR-WYE-G02932409

PATIENT
  Sex: Female
  Weight: 19.5 kg

DRUGS (1)
  1. TAZOCILLINE [Suspect]
     Dosage: UNKNOWN
     Route: 042
     Dates: start: 20061101, end: 20060101

REACTIONS (3)
  - BILIARY TRACT INFECTION [None]
  - CHOLANGITIS [None]
  - DERMATITIS ALLERGIC [None]
